FAERS Safety Report 26113167 (Version 1)
Quarter: 2025Q4

REPORT INFORMATION
  Report Type: Report from Study
  Country: US (occurrence: US)
  Receive Date: 20251202
  Receipt Date: 20251202
  Transmission Date: 20260117
  Serious: Yes (Hospitalization)
  Sender: INCYTE
  Company Number: US-EVENT-005091

PATIENT
  Age: 73 Year

DRUGS (2)
  1. JAKAFI [Suspect]
     Active Substance: RUXOLITINIB
     Indication: Thrombocytosis
     Dosage: UNK
     Route: 065
  2. JAKAFI [Suspect]
     Active Substance: RUXOLITINIB
     Indication: Myelofibrosis
     Dosage: 15 MILLIGRAM
     Route: 065

REACTIONS (3)
  - Splenomegaly [Recovering/Resolving]
  - Product availability issue [Recovered/Resolved]
  - Off label use [Unknown]
